FAERS Safety Report 10092030 (Version 3)
Quarter: 2015Q3

REPORT INFORMATION
  Report Type: Spontaneous
  Country: US (occurrence: US)
  Receive Date: 20140421
  Receipt Date: 20150814
  Transmission Date: 20151125
  Serious: No
  Sender: FDA-Public Use
  Company Number: US-GILEAD-2013-0070812

PATIENT
  Age: 36 Year
  Sex: Male
  Weight: 379 kg

DRUGS (29)
  1. TRILIPIX [Concomitant]
     Active Substance: FENOFIBRIC ACID
  2. TOPIRAMATE. [Concomitant]
     Active Substance: TOPIRAMATE
  3. LEVOTHYROXINE. [Concomitant]
     Active Substance: LEVOTHYROXINE
  4. CYMBALTA [Concomitant]
     Active Substance: DULOXETINE HYDROCHLORIDE
  5. B VITAMIN COMP                     /00003501/ [Concomitant]
  6. LETAIRIS [Suspect]
     Active Substance: AMBRISENTAN
     Dosage: 5 UNK, UNK
  7. ASPIRIN. [Concomitant]
     Active Substance: ASPIRIN
  8. METOLAZONE. [Concomitant]
     Active Substance: METOLAZONE
  9. FUROSEMIDE. [Concomitant]
     Active Substance: FUROSEMIDE
  10. ZOLPIDEM [Concomitant]
     Active Substance: ZOLPIDEM\ZOLPIDEM TARTRATE
  11. RAPAFLO [Concomitant]
     Active Substance: SILODOSIN
  12. LOSARTAN. [Concomitant]
     Active Substance: LOSARTAN
  13. LORTAB [Concomitant]
     Active Substance: ACETAMINOPHEN\HYDROCODONE BITARTRATE
  14. GLIMEPERIDE [Concomitant]
     Active Substance: GLIMEPIRIDE
  15. OLOPATADINE [Concomitant]
     Active Substance: OLOPATADINE
  16. NEURONTIN [Concomitant]
     Active Substance: GABAPENTIN
  17. AMLODIPINE [Concomitant]
     Active Substance: AMLODIPINE BESYLATE
  18. METHOCARBAMOL. [Concomitant]
     Active Substance: METHOCARBAMOL
  19. TIZANADINE [Concomitant]
  20. FENTANYL. [Concomitant]
     Active Substance: FENTANYL
  21. ZYRTEC [Concomitant]
     Active Substance: CETIRIZINE HYDROCHLORIDE
  22. TRAMADOL. [Concomitant]
     Active Substance: TRAMADOL
  23. LETAIRIS [Suspect]
     Active Substance: AMBRISENTAN
     Indication: PRODUCT USED FOR UNKNOWN INDICATION
     Dosage: 10 MG, QD
     Dates: start: 20130111
  24. ADCIRCA [Concomitant]
     Active Substance: TADALAFIL
  25. INVEGA [Concomitant]
     Active Substance: PALIPERIDONE
  26. KLONOPIN [Concomitant]
     Active Substance: CLONAZEPAM
  27. DIPHENHYDRAMINE                    /00000402/ [Concomitant]
     Active Substance: DIPHENHYDRAMINE
  28. DILTIAZEM [Concomitant]
     Active Substance: DILTIAZEM
  29. TOPIRAMATE. [Concomitant]
     Active Substance: TOPIRAMATE

REACTIONS (3)
  - Oedema [Recovered/Resolved]
  - Oedema peripheral [Recovered/Resolved]
  - Dizziness [Recovered/Resolved]

NARRATIVE: CASE EVENT DATE: 201302
